FAERS Safety Report 19064139 (Version 2)
Quarter: 2021Q1

REPORT INFORMATION
  Report Type: Report from Study
  Country: US (occurrence: US)
  Receive Date: 20210326
  Receipt Date: 20210331
  Transmission Date: 20210420
  Serious: Yes (Hospitalization, Other)
  Sender: FDA-Public Use
  Company Number: US-BRISTOL-MYERS SQUIBB COMPANY-BMS-2021-029552

PATIENT
  Age: 52 Year
  Sex: Male

DRUGS (6)
  1. ABATACEPT [Suspect]
     Active Substance: ABATACEPT
     Indication: PRODUCT USED FOR UNKNOWN INDICATION
     Dosage: UNK
     Route: 065
  2. ENBREL [Suspect]
     Active Substance: ETANERCEPT
     Indication: PRODUCT USED FOR UNKNOWN INDICATION
     Dosage: UNK
     Route: 065
  3. XANAX [Concomitant]
     Active Substance: ALPRAZOLAM
     Indication: ANXIETY
     Dosage: UNK
     Route: 065
  4. HUMIRA [Suspect]
     Active Substance: ADALIMUMAB
     Indication: PRODUCT USED FOR UNKNOWN INDICATION
     Dosage: UNK
     Route: 058
  5. SIMPONI [Suspect]
     Active Substance: GOLIMUMAB
     Indication: PRODUCT USED FOR UNKNOWN INDICATION
     Dosage: UNK
     Route: 065
  6. PREDNISONE. [Suspect]
     Active Substance: PREDNISONE
     Indication: PRODUCT USED FOR UNKNOWN INDICATION
     Dosage: UNK
     Route: 065

REACTIONS (23)
  - Memory impairment [Not Recovered/Not Resolved]
  - Joint lock [Recovered/Resolved]
  - Stress [Not Recovered/Not Resolved]
  - Nightmare [Recovered/Resolved]
  - Groin pain [Unknown]
  - Diabetic coma [Unknown]
  - Illness [Recovered/Resolved]
  - Diarrhoea [Unknown]
  - Type 1 diabetes mellitus [Unknown]
  - Eating disorder [Unknown]
  - Emotional distress [Not Recovered/Not Resolved]
  - Pain [Recovered/Resolved]
  - Joint noise [Recovered/Resolved]
  - Coronary artery disease [Recovered/Resolved]
  - Joint injury [Recovered/Resolved]
  - Myocardial infarction [Unknown]
  - Rheumatoid arthritis [Unknown]
  - Drug ineffective [Recovered/Resolved]
  - Fatigue [Unknown]
  - Micturition urgency [Unknown]
  - Pneumonia [Recovered/Resolved]
  - Systemic lupus erythematosus [Unknown]
  - Skin lesion [Recovered/Resolved]
